FAERS Safety Report 16498569 (Version 2)
Quarter: 2019Q3

REPORT INFORMATION
  Report Type: Spontaneous
  Country: US (occurrence: US)
  Receive Date: 20190629
  Receipt Date: 20190704
  Transmission Date: 20191004
  Serious: No
  Sender: FDA-Public Use
  Company Number: PHHY2019US150554

PATIENT
  Sex: Female

DRUGS (1)
  1. NAPHCON [Suspect]
     Active Substance: NAPHAZOLINE HYDROCHLORIDE
     Indication: EYELID PTOSIS
     Dosage: UNK
     Route: 047
     Dates: start: 20190503

REACTIONS (2)
  - Eye irritation [Unknown]
  - Drug ineffective [Unknown]
